FAERS Safety Report 12855183 (Version 3)
Quarter: 2016Q4

REPORT INFORMATION
  Report Type: Spontaneous
  Country: DE (occurrence: DE)
  Receive Date: 20161017
  Receipt Date: 20161027
  Transmission Date: 20170207
  Serious: Yes (Death, Hospitalization)
  Sender: FDA-Public Use
  Company Number: DE-ALLERGAN-1647176

PATIENT
  Age: 75 Year
  Sex: Male

DRUGS (9)
  1. ZYTIGA [Concomitant]
     Active Substance: ABIRATERONE ACETATE
     Indication: PRODUCT USED FOR UNKNOWN INDICATION
     Dosage: UNK, UNKNOWN
     Route: 065
  2. PREDNISOLONE. [Concomitant]
     Active Substance: PREDNISOLONE
     Indication: PRODUCT USED FOR UNKNOWN INDICATION
     Dosage: 7.5 MG, UNK
  3. FENTANYL. [Concomitant]
     Active Substance: FENTANYL
     Indication: PRODUCT USED FOR UNKNOWN INDICATION
     Dosage: 25 MICROGRAMS/HOURS
  4. KALINOR RETARD P [Concomitant]
     Active Substance: POTASSIUM CHLORIDE
     Indication: PRODUCT USED FOR UNKNOWN INDICATION
     Dosage: 1 IN 1 DAILY
  5. ZOMETA [Concomitant]
     Active Substance: ZOLEDRONIC ACID
     Indication: PRODUCT USED FOR UNKNOWN INDICATION
  6. TRIPTORELIN PAMOATE - BP [Suspect]
     Active Substance: TRIPTORELIN PAMOATE
     Indication: PROSTATE CANCER
     Dosage: 22.5 MG, SINGLE
     Route: 065
     Dates: start: 20150813, end: 20150813
  7. PANTOZOL [Concomitant]
     Active Substance: PANTOPRAZOLE SODIUM
     Indication: PRODUCT USED FOR UNKNOWN INDICATION
     Dosage: 40 MG, BID
  8. TRIPTORELIN PAMOATE - BP [Suspect]
     Active Substance: TRIPTORELIN PAMOATE
     Dosage: 22.5 MG, SINGLE
     Dates: start: 20150910, end: 20150910
  9. XGEVA [Concomitant]
     Active Substance: DENOSUMAB
     Indication: PRODUCT USED FOR UNKNOWN INDICATION
     Dosage: UNK, UNKNOWN
     Route: 065

REACTIONS (24)
  - Inappropriate schedule of drug administration [Unknown]
  - Diet refusal [Unknown]
  - Hypokinesia [Unknown]
  - Vision blurred [Unknown]
  - Constipation [Unknown]
  - Death [Fatal]
  - Tongue dry [Unknown]
  - Dizziness [Unknown]
  - Asthenia [Unknown]
  - Incontinence [Unknown]
  - Acute stress disorder [Unknown]
  - Insomnia [Unknown]
  - Suicidal ideation [Unknown]
  - Dry skin [Unknown]
  - Spinal pain [Not Recovered/Not Resolved]
  - Neoplasm progression [Unknown]
  - Thrombosis [Unknown]
  - Decreased appetite [Unknown]
  - Overdose [Unknown]
  - Bowel movement irregularity [Unknown]
  - Gait disturbance [Unknown]
  - Tongue coated [Unknown]
  - Polyneuropathy [Unknown]
  - Vestibular disorder [Unknown]

NARRATIVE: CASE EVENT DATE: 201508
